FAERS Safety Report 9279612 (Version 1)
Quarter: 2013Q2

REPORT INFORMATION
  Report Type: Spontaneous
  Country: TW (occurrence: TW)
  Receive Date: 20130509
  Receipt Date: 20130509
  Transmission Date: 20140414
  Serious: Yes (Hospitalization)
  Sender: FDA-Public Use
  Company Number: TW-009507513-1305TWN001924

PATIENT
  Age: 37 Year
  Sex: Male

DRUGS (9)
  1. ISENTRESS [Suspect]
     Indication: HIV INFECTION
     Dosage: 400 MG, BID
     Route: 048
     Dates: start: 20130206
  2. FAMVIR [Concomitant]
     Indication: ANTIVIRAL PROPHYLAXIS
     Dosage: 500 MG, TID
     Dates: start: 20130501, end: 20130502
  3. PANADOL [Concomitant]
     Indication: ANTIPYRESIS
     Dosage: 500 MG, TID
     Dates: start: 20130501, end: 20130502
  4. PANADOL [Concomitant]
     Indication: ANALGESIC THERAPY
  5. COLCHICINE [Concomitant]
     Indication: GOUT
     Dosage: 0.5 MG, QD
     Dates: start: 20101215
  6. ALLOPURINOL [Concomitant]
     Indication: GOUT
     Dosage: 200 MG, QD
     Dates: start: 20101215
  7. VIDEX [Concomitant]
     Indication: HIV INFECTION
     Dosage: 400 MG, QD
     Dates: start: 20090324
  8. ZIAGEN [Concomitant]
     Indication: HIV INFECTION
     Dosage: 600 MG, QD
     Dates: start: 20130206
  9. ELOMET [Concomitant]
     Dosage: 0.1 %, BID
     Dates: start: 20130410

REACTIONS (3)
  - Varicella [Unknown]
  - Oropharyngeal pain [Unknown]
  - Pyrexia [Unknown]
